FAERS Safety Report 17697466 (Version 1)
Quarter: 2020Q2

REPORT INFORMATION
  Report Type: Spontaneous
  Country: US (occurrence: US)
  Receive Date: 20200422
  Receipt Date: 20200422
  Transmission Date: 20200714
  Serious: No
  Sender: FDA-Public Use
  Company Number: None

PATIENT
  Age: 80 Year
  Sex: Female
  Weight: 61.23 kg

DRUGS (7)
  1. PRISER VISION [Concomitant]
  2. METFORMIN [Concomitant]
     Active Substance: METFORMIN HYDROCHLORIDE
  3. CLINDAMYCIN HCL [Suspect]
     Active Substance: CLINDAMYCIN HYDROCHLORIDE
     Indication: GINGIVITIS
     Dosage: ?          QUANTITY:1 DF DOSAGE FORM;OTHER FREQUENCY:4 TIMES DAY-1 WEEK;?
     Route: 048
     Dates: start: 20200322, end: 20200327
  4. METHOTREXATE. [Concomitant]
     Active Substance: METHOTREXATE
  5. CALCIUM PLUS VITAMIN D3 [Concomitant]
  6. SIMVASTATIN. [Concomitant]
     Active Substance: SIMVASTATIN
  7. CENRUM SILVER [Concomitant]

REACTIONS (2)
  - Product formulation issue [None]
  - Drug ineffective [None]

NARRATIVE: CASE EVENT DATE: 20200322
